FAERS Safety Report 6137529-4 (Version None)
Quarter: 2009Q1

REPORT INFORMATION
  Report Type: 
  Country: None (occurrence: None)
  Receive Date: 20090326
  Receipt Date: 20090319
  Transmission Date: 20090719
  Serious: Yes (Hospitalization)
  Sender: FDA-Public Use
  Company Number: OMPQ-NO-0903S-0187

PATIENT
  Age: 65 Year
  Sex: Female

DRUGS (5)
  1. OMNIPAQUE 300 [Suspect]
     Indication: DRUG USE FOR UNKNOWN INDICATION
     Dosage: 20 ML, SINGLE DOSE, P.O., 20 ML, SINGLE DOSE, P.O., 100 ML, SINGLE DOSE, I.V.
     Route: 048
     Dates: start: 20090208, end: 20090208
  2. OMNIPAQUE 300 [Suspect]
     Indication: DRUG USE FOR UNKNOWN INDICATION
     Dosage: 20 ML, SINGLE DOSE, P.O., 20 ML, SINGLE DOSE, P.O., 100 ML, SINGLE DOSE, I.V.
     Route: 048
     Dates: start: 20090209, end: 20090209
  3. OMNIPAQUE 300 [Suspect]
     Indication: DRUG USE FOR UNKNOWN INDICATION
     Dosage: 20 ML, SINGLE DOSE, P.O., 20 ML, SINGLE DOSE, P.O., 100 ML, SINGLE DOSE, I.V.
     Route: 048
     Dates: start: 20090209, end: 20090209
  4. TAMOXIFEN CITRATE [Concomitant]
  5. RABEPRAZOLE SODIUM (PARIET) [Concomitant]

REACTIONS (7)
  - EOSINOPHILIA [None]
  - ERYTHEMA [None]
  - FACE OEDEMA [None]
  - PRURITUS [None]
  - PYREXIA [None]
  - RASH PUSTULAR [None]
  - THROMBOCYTOPENIA [None]
